FAERS Safety Report 13181519 (Version 2)
Quarter: 2018Q4

REPORT INFORMATION
  Report Type: Spontaneous
  Country: RO (occurrence: RO)
  Receive Date: 20170202
  Receipt Date: 20181114
  Transmission Date: 20190204
  Serious: Yes (Other)
  Sender: FDA-Public Use
  Company Number: RO-JNJFOC-20170125370

PATIENT

DRUGS (4)
  1. PREDNISONE. [Suspect]
     Active Substance: PREDNISONE
     Indication: NON-HODGKIN^S LYMPHOMA
     Route: 065
  2. DOXORUBICIN HYDROCHLORIDE. [Suspect]
     Active Substance: DOXORUBICIN HYDROCHLORIDE
     Indication: NON-HODGKIN^S LYMPHOMA
     Route: 065
  3. CYCLOPHOSPHAMIDE. [Suspect]
     Active Substance: CYCLOPHOSPHAMIDE
     Indication: NON-HODGKIN^S LYMPHOMA
     Route: 065
  4. ONCOVIN [Suspect]
     Active Substance: VINCRISTINE SULFATE
     Indication: NON-HODGKIN^S LYMPHOMA
     Route: 065

REACTIONS (4)
  - Ejection fraction decreased [Unknown]
  - Product use in unapproved indication [Unknown]
  - Off label use [Unknown]
  - Cardiotoxicity [Unknown]
